FAERS Safety Report 12347502 (Version 1)
Quarter: 2016Q2

REPORT INFORMATION
  Report Type: Spontaneous
  Country: GB (occurrence: GB)
  Receive Date: 20160509
  Receipt Date: 20160509
  Transmission Date: 20160815
  Serious: Yes (Other)
  Sender: FDA-Public Use
  Company Number: GB-B. BRAUN MEDICAL INC.-1051672

PATIENT
  Age: 29 Month
  Sex: Male
  Weight: 10 kg

DRUGS (8)
  1. OMEPRAZOLE. [Concomitant]
     Active Substance: OMEPRAZOLE
  2. HEPARIN [Concomitant]
     Active Substance: HEPARIN SODIUM
     Route: 040
  3. ONDANSETRON [Concomitant]
     Active Substance: ONDANSETRON
  4. SODIUM CHLORIDE. [Suspect]
     Active Substance: SODIUM CHLORIDE
     Indication: DEVICE PRIMING
     Dates: start: 20160203
  5. ANHYDROUS SODIUM PHOSPHATE [Concomitant]
  6. PYRIDOXINE [Concomitant]
     Active Substance: PYRIDOXINE
  7. FOLIC ACID. [Concomitant]
     Active Substance: FOLIC ACID
  8. PARACETAMOL [Concomitant]
     Active Substance: ACETAMINOPHEN

REACTIONS (5)
  - Rash [None]
  - Haemolysis [None]
  - Tachycardia [None]
  - Crying [None]
  - Haemoglobin decreased [None]
